FAERS Safety Report 9343675 (Version 1)
Quarter: 2013Q2

REPORT INFORMATION
  Report Type: Spontaneous
  Country: US (occurrence: US)
  Receive Date: 20130612
  Receipt Date: 20130612
  Transmission Date: 20140414
  Serious: No
  Sender: FDA-Public Use
  Company Number: US-009507513-1305USA012773

PATIENT
  Age: 47 Year
  Sex: Female

DRUGS (1)
  1. PEGINTRON [Suspect]
     Indication: HEPATITIS C
     Dosage: 1 DF, QW, REDIPEN
     Route: 058
     Dates: start: 20130514

REACTIONS (2)
  - Circumstance or information capable of leading to medication error [Unknown]
  - Product quality issue [Unknown]
